FAERS Safety Report 6282154-8 (Version None)
Quarter: 2009Q3

REPORT INFORMATION
  Report Type: 
  Country: None (occurrence: None)
  Receive Date: 20090721
  Receipt Date: 20090721
  Transmission Date: 20100115
  Serious: Yes (Other)
  Sender: FDA-Public Use
  Company Number: None

PATIENT
  Sex: Male

DRUGS (3)
  1. VORICONAZOLE [Suspect]
     Indication: FUNGAL INFECTION
     Dosage: 400 MG BID INTRAVENOUS
     Route: 042
     Dates: start: 20090526
  2. ZOSYN [Concomitant]
  3. VANCOMYCIN [Concomitant]

REACTIONS (1)
  - HALLUCINATION, VISUAL [None]
